FAERS Safety Report 9774985 (Version 1)
Quarter: 2013Q4

REPORT INFORMATION
  Report Type: Spontaneous
  Country: US (occurrence: US)
  Receive Date: 20131220
  Receipt Date: 20131220
  Transmission Date: 20140711
  Serious: No
  Sender: FDA-Public Use
  Company Number: US-GLAXOSMITHKLINE-A1028058A

PATIENT
  Age: 79 Year
  Sex: Male
  Weight: 82 kg

DRUGS (2)
  1. AVODART [Suspect]
     Indication: DYSURIA
     Route: 065
     Dates: start: 20130426
  2. RAPAFLO [Suspect]
     Indication: DYSURIA
     Dosage: 1CAP PER DAY
     Route: 048
     Dates: start: 20130426

REACTIONS (1)
  - Diarrhoea [Not Recovered/Not Resolved]
